FAERS Safety Report 5019802-6 (Version None)
Quarter: 2006Q2

REPORT INFORMATION
  Report Type: 
  Country: None (occurrence: None)
  Receive Date: 20060605
  Receipt Date: 20060605
  Transmission Date: 20061013
  Serious: Yes (Other)
  Sender: FDA-Public Use
  Company Number: None

PATIENT
  Sex: Male
  Weight: 200 kg

DRUGS (11)
  1. CEFEPIME [Suspect]
     Indication: PERITONEAL ABSCESS
     Dosage: 2 GM Q 12 H IV
     Route: 042
     Dates: start: 20060329, end: 20060503
  2. LINEZOLID [Suspect]
     Indication: PERITONEAL ABSCESS
     Dosage: 600 MG Q 12 H IV
     Route: 042
     Dates: start: 20060413, end: 20060503
  3. METRONIDAZOLE [Concomitant]
  4. CASPOFUNGIN [Concomitant]
  5. MORPHINE [Concomitant]
  6. BENADRYL [Concomitant]
  7. AMBIEN [Concomitant]
  8. DARBEPOETIN [Concomitant]
  9. FENTANYL [Concomitant]
  10. PANTOPRAZOLE [Concomitant]
  11. SANDOSTATIN [Concomitant]

REACTIONS (3)
  - CONFUSIONAL STATE [None]
  - HALLUCINATION [None]
  - INSOMNIA [None]
